FAERS Safety Report 20184292 (Version 2)
Quarter: 2022Q1

REPORT INFORMATION
  Report Type: Spontaneous
  Country: US (occurrence: US)
  Receive Date: 20211214
  Receipt Date: 20220316
  Transmission Date: 20220423
  Serious: No
  Sender: FDA-Public Use
  Company Number: US-SK LIFE SCIENCE, INC-SKPVG-2021-001067

PATIENT

DRUGS (2)
  1. XCOPRI [Suspect]
     Active Substance: CENOBAMATE
     Indication: Epilepsy
     Dosage: 12.5/25MG TITRATION PACK
     Route: 048
     Dates: start: 20210826
  2. XCOPRI [Suspect]
     Active Substance: CENOBAMATE
     Dosage: 200 MILLIGRAM, QD (150MG/200MG TITRATION PACK), FOR 28 DAYS.
     Route: 048
     Dates: start: 20211105

REACTIONS (3)
  - Epilepsy [Not Recovered/Not Resolved]
  - Slow speech [Unknown]
  - Language disorder [Unknown]

NARRATIVE: CASE EVENT DATE: 20211105
